FAERS Safety Report 7503444-4 (Version None)
Quarter: 2011Q2

REPORT INFORMATION
  Report Type: 
  Country: None (occurrence: None)
  Receive Date: 20110525
  Receipt Date: 20110520
  Transmission Date: 20111010
  Serious: Yes (Death)
  Sender: FDA-Public Use
  Company Number: HU-ROCHE-707676

PATIENT
  Sex: Female
  Weight: 70 kg

DRUGS (2)
  1. TRASTUZUMAB [Suspect]
     Dosage: FORM:VIAL;MAINTENANCE DOSE
     Route: 042
     Dates: start: 20041103, end: 20051116
  2. TRASTUZUMAB [Suspect]
     Indication: BREAST CANCER
     Dosage: LOADING DOSE
     Route: 042
     Dates: start: 20041012, end: 20041012

REACTIONS (1)
  - UTERINE LEIOMYOSARCOMA [None]
